FAERS Safety Report 5367884-4 (Version None)
Quarter: 2007Q2

REPORT INFORMATION
  Report Type: 
  Country: None (occurrence: None)
  Receive Date: 20070622
  Receipt Date: 20070614
  Transmission Date: 20071010
  Serious: Yes (Hospitalization)
  Sender: FDA-Public Use
  Company Number: US-AMGEN-STX229716

PATIENT
  Sex: Male

DRUGS (2)
  1. ENBREL [Suspect]
     Indication: RHEUMATOID ARTHRITIS
     Route: 058
     Dates: start: 19991001
  2. UNKNOWN [Concomitant]
     Route: 048
     Dates: start: 19920101

REACTIONS (2)
  - CORONARY ARTERIAL STENT INSERTION [None]
  - INJECTION SITE PAIN [None]
